FAERS Safety Report 21285797 (Version 1)
Quarter: 2022Q3

REPORT INFORMATION
  Report Type: Spontaneous
  Country: US (occurrence: None)
  Receive Date: 20220901
  Receipt Date: 20220901
  Transmission Date: 20221027
  Serious: Yes (Disabling)
  Sender: FDA-Public Use
  Company Number: None

PATIENT
  Age: 68 Year
  Sex: Female
  Weight: 58.5 kg

DRUGS (10)
  1. RISEDRONATE SODIUM [Suspect]
     Active Substance: RISEDRONATE SODIUM
     Indication: Osteoporosis
     Dosage: OTHER QUANTITY : 4 TABLET(S);?OTHER FREQUENCY : ONCE A WEEK;?
     Route: 048
  2. Azelastine HCI Nasal Solution 0.1% [Concomitant]
  3. IPRATROPIUM BROMIDE [Concomitant]
     Active Substance: IPRATROPIUM BROMIDE
  4. VALACYCLOVIR HYDROCHLORIDE [Concomitant]
     Active Substance: VALACYCLOVIR HYDROCHLORIDE
  5. VITAMIN D3 [Concomitant]
     Active Substance: CHOLECALCIFEROL
  6. MENAQUINONE 6 [Concomitant]
     Active Substance: MENAQUINONE 6
  7. Calcium/Magnesium tablets [Concomitant]
  8. Sym-Pack Multi-Vitamin Mineral [Concomitant]
  9. Glandular Formula tablets [Concomitant]
  10. Mega sporebiotic [Concomitant]

REACTIONS (8)
  - Abdominal pain upper [None]
  - Nausea [None]
  - Asthenia [None]
  - Chills [None]
  - Pyrexia [None]
  - Feeding disorder [None]
  - Arthralgia [None]
  - Therapy cessation [None]

NARRATIVE: CASE EVENT DATE: 20220829
